FAERS Safety Report 4579172-4 (Version None)
Quarter: 2005Q1

REPORT INFORMATION
  Report Type: 
  Country: None (occurrence: None)
  Receive Date: 20050208
  Receipt Date: 20050208
  Transmission Date: 20050727
  Serious: Yes (Other)
  Sender: FDA-Public Use
  Company Number: None

PATIENT
  Age: 32 Year
  Sex: Male
  Weight: 80 kg

DRUGS (5)
  1. PAROXETINE [Suspect]
     Indication: MAJOR DEPRESSION
     Dosage: 100 BUCCAL
     Route: 002
     Dates: start: 20050102, end: 20050105
  2. PAROXETINE [Suspect]
     Indication: SLEEP DISORDER
     Dosage: 100 BUCCAL
     Route: 002
     Dates: start: 20050102, end: 20050105
  3. CARBAMAZEPINE [Concomitant]
  4. MODAFINILE [Concomitant]
  5. PAROXETINE [Concomitant]

REACTIONS (1)
  - PARAESTHESIA [None]
